FAERS Safety Report 5420828-9 (Version None)
Quarter: 2007Q3

REPORT INFORMATION
  Report Type: 
  Country: None (occurrence: None)
  Receive Date: 20070821
  Receipt Date: 20070808
  Transmission Date: 20080115
  Serious: Yes (Other)
  Sender: FDA-Public Use
  Company Number: CA-ELI_LILLY_AND_COMPANY-CA200707003285

PATIENT
  Age: 82 Year
  Sex: Female

DRUGS (9)
  1. FORTEO [Suspect]
     Indication: OSTEOPOROSIS
     Dosage: 20 UG, DAILY (1/D)
     Route: 058
     Dates: start: 20070214
  2. OXYCONTIN [Concomitant]
  3. PREVACID [Concomitant]
  4. SYNTHROID [Concomitant]
  5. ADALAT CC [Concomitant]
  6. HYDROCHLOROTHIAZIDE [Concomitant]
  7. CALCIUM CHLORIDE [Concomitant]
  8. VITAMIN D [Concomitant]
  9. GLUCOSAMINE [Concomitant]

REACTIONS (3)
  - BONE PAIN [None]
  - FATIGUE [None]
  - UTERINE CANCER [None]
